FAERS Safety Report 4968339-9 (Version None)
Quarter: 2006Q2

REPORT INFORMATION
  Report Type: 
  Country: None (occurrence: None)
  Receive Date: 20060410
  Receipt Date: 20020625
  Transmission Date: 20061013
  Serious: Yes (Life-Threatening, Hospitalization, Other)
  Sender: FDA-Public Use
  Company Number: ES-BRISTOL-MYERS SQUIBB COMPANY-11924974

PATIENT
  Age: 55 Year
  Sex: Female

DRUGS (5)
  1. MODECATE [Suspect]
     Indication: SCHIZOPHRENIFORM DISORDER
     Dosage: DATE STATED: LONG-TERM
     Route: 030
  2. MODURETIC 5-50 [Interacting]
     Indication: ESSENTIAL HYPERTENSION
     Dosage: 5/50 MG
     Route: 048
     Dates: start: 20010905, end: 20011114
  3. ZYPREXA [Interacting]
     Indication: SCHIZOPHRENIFORM DISORDER
     Route: 048
     Dates: end: 20011114
  4. ZYPREXA [Interacting]
     Dates: start: 20011114
  5. TRANXILIUM [Concomitant]
     Dosage: DATE STATED: LONG-TERM
     Route: 048

REACTIONS (6)
  - ASTHENIA [None]
  - CENTRAL PONTINE MYELINOLYSIS [None]
  - COMA [None]
  - DRUG INTERACTION [None]
  - HYPONATRAEMIA [None]
  - VOMITING [None]
